FAERS Safety Report 20016287 (Version 1)
Quarter: 2021Q4

REPORT INFORMATION
  Report Type: Spontaneous
  Country: US (occurrence: None)
  Receive Date: 20211103
  Receipt Date: 20211103
  Transmission Date: 20220303
  Serious: Yes (Hospitalization, Disabling)
  Sender: FDA-Public Use
  Company Number: None

PATIENT
  Age: 55 Year
  Sex: Female
  Weight: 62.1 kg

DRUGS (1)
  1. RITUXIMAB [Suspect]
     Active Substance: RITUXIMAB
     Indication: Rheumatoid arthritis
     Route: 042
     Dates: start: 20190726, end: 20190805

REACTIONS (10)
  - Neurotoxicity [None]
  - Shock [None]
  - Cytokine storm [None]
  - Platelet count decreased [None]
  - Fatigue [None]
  - Vomiting [None]
  - Nausea [None]
  - Headache [None]
  - Burning sensation [None]
  - Immunodeficiency [None]

NARRATIVE: CASE EVENT DATE: 20190820
